FAERS Safety Report 6006736-3 (Version None)
Quarter: 2008Q4

REPORT INFORMATION
  Report Type: 
  Country: None (occurrence: None)
  Receive Date: 20081217
  Receipt Date: 20081205
  Transmission Date: 20090506
  Serious: Yes (Other)
  Sender: FDA-Public Use
  Company Number: US-PFIZER INC-2008079031

PATIENT
  Sex: Male
  Weight: 64.671 kg

DRUGS (1)
  1. ZYVOX [Suspect]
     Indication: ENTEROCOCCAL INFECTION
     Dosage: 600 MG, UNK
     Route: 048
     Dates: start: 20080422, end: 20080918

REACTIONS (4)
  - CONDITION AGGRAVATED [None]
  - NEUROPATHY PERIPHERAL [None]
  - OPTIC NEUROPATHY [None]
  - VISION BLURRED [None]
